FAERS Safety Report 18058883 (Version 5)
Quarter: 2021Q4

REPORT INFORMATION
  Report Type: Spontaneous
  Country: US (occurrence: US)
  Receive Date: 20200723
  Receipt Date: 20211118
  Transmission Date: 20220303
  Serious: Yes (Disabling, Other)
  Sender: FDA-Public Use
  Company Number: US-009507513-2007USA008302

PATIENT
  Sex: Male

DRUGS (17)
  1. BELSOMRA [Suspect]
     Active Substance: SUVOREXANT
     Indication: Insomnia
     Dosage: 10 MG NIGHTLY
     Dates: start: 201904, end: 201904
  2. BELSOMRA [Suspect]
     Active Substance: SUVOREXANT
     Indication: Pain
     Dosage: 40 MG NIGHTLY
  3. BELSOMRA [Suspect]
     Active Substance: SUVOREXANT
     Dosage: 20 MILLIGRAM, 2 TIMES PER DAY
     Route: 048
     Dates: start: 201904, end: 202003
  4. BELSOMRA [Suspect]
     Active Substance: SUVOREXANT
     Dosage: 20 MILLIGRAM, PRN, AT NIGHT
     Route: 048
  5. CLOZAPINE [Suspect]
     Active Substance: CLOZAPINE
     Dosage: 37.5 MG AS NEEDED FOR SLEEP
  6. INDERAL [Suspect]
     Active Substance: PROPRANOLOL HYDROCHLORIDE
     Indication: Adverse drug reaction
     Dosage: 1 TAB TWICE A DAY AS NEEDED
     Route: 048
  7. NALTREXONE [Concomitant]
     Active Substance: NALTREXONE
  8. PARNATE [Concomitant]
     Active Substance: TRANYLCYPROMINE SULFATE
     Dosage: 5 MG DAILY
  9. BENADRYL [Concomitant]
     Active Substance: DIPHENHYDRAMINE HYDROCHLORIDE
     Dosage: 300 MILLIGRAM, QD
  10. DOXYLAMINE SUCCINATE [Concomitant]
     Active Substance: DOXYLAMINE SUCCINATE
  11. ARTANE [Concomitant]
     Active Substance: TRIHEXYPHENIDYL HYDROCHLORIDE
  12. LITHIUM [Concomitant]
     Active Substance: LITHIUM
     Dosage: 1 TAB TWO TIMES A DAY
     Route: 048
  13. VITAMINS NOS [Concomitant]
     Active Substance: VITAMINS
     Dosage: UNK
  14. XANAX [Concomitant]
     Active Substance: ALPRAZOLAM
     Indication: Anxiety
     Dosage: 0.5 MG EVERY 6 HOURS AS NEEDED
  15. NORCO [Concomitant]
     Active Substance: ACETAMINOPHEN\HYDROCODONE BITARTRATE
     Indication: Pain
     Dosage: 5-325 MG THREE TIMES A DAY AS NEEDED
  16. CLONIDINE [Concomitant]
     Active Substance: CLONIDINE
     Indication: Anxiety
     Dosage: 0.2 MG THREE TIMES A DAY AS NEEDED
  17. TIZANIDINE [Concomitant]
     Active Substance: TIZANIDINE
     Dosage: 4 MG ONE CAPSULE AT BEDTIME
     Route: 048

REACTIONS (17)
  - Facial bones fracture [Unknown]
  - Syncope [Recovering/Resolving]
  - Impaired work ability [Recovering/Resolving]
  - Suicidal ideation [Recovered/Resolved]
  - Ill-defined disorder [Unknown]
  - Memory impairment [Unknown]
  - Abnormal behaviour [Unknown]
  - Sleep disorder [Unknown]
  - Depression [Recovering/Resolving]
  - Fine motor skill dysfunction [Recovering/Resolving]
  - Disturbance in attention [Recovering/Resolving]
  - Muscular weakness [Recovering/Resolving]
  - Feeling abnormal [Unknown]
  - Dizziness [Recovering/Resolving]
  - Prescribed overdose [Unknown]
  - Product prescribing issue [Unknown]
  - Therapeutic response unexpected [Unknown]

NARRATIVE: CASE EVENT DATE: 20190101
